FAERS Safety Report 14536655 (Version 1)
Quarter: 2018Q1

REPORT INFORMATION
  Report Type: Spontaneous
  Country: US (occurrence: US)
  Receive Date: 20180215
  Receipt Date: 20180215
  Transmission Date: 20180509
  Serious: Yes (Hospitalization)
  Sender: FDA-Public Use
  Company Number: None

PATIENT
  Age: 83 Year
  Sex: Male
  Weight: 85.7 kg

DRUGS (15)
  1. APAP [Concomitant]
     Active Substance: ACETAMINOPHEN
  2. LEXAPRO [Concomitant]
     Active Substance: ESCITALOPRAM OXALATE
  3. OMEGA 3 [Concomitant]
     Active Substance: OMEGA-3 FATTY ACIDS
  4. MS CONTIN [Suspect]
     Active Substance: MORPHINE SULFATE
     Indication: PAIN
     Dosage: DATES OF USE - CHRONIC
     Route: 048
  5. COLACE [Concomitant]
     Active Substance: DOCUSATE SODIUM
  6. NEURONTIN [Concomitant]
     Active Substance: GABAPENTIN
  7. VITAMIN D [Concomitant]
     Active Substance: CHOLECALCIFEROL
  8. ADVIL [Concomitant]
     Active Substance: IBUPROFEN
  9. LORAZEPAM. [Concomitant]
     Active Substance: LORAZEPAM
  10. ECOTRIN [Concomitant]
     Active Substance: ASPIRIN
  11. LOPRESSOR [Concomitant]
     Active Substance: METOPROLOL TARTRATE
  12. VITAMIN B12 [Concomitant]
     Active Substance: CYANOCOBALAMIN
  13. LASIX [Concomitant]
     Active Substance: FUROSEMIDE
  14. PERCOCET [Suspect]
     Active Substance: ACETAMINOPHEN\OXYCODONE HYDROCHLORIDE
     Indication: PAIN
     Dosage: DATES OF USE - CHRONIC?DOSE 5/325 MG?FREQUENCY - Q6HRS PRN
     Route: 048
  15. SEROQUEL [Concomitant]
     Active Substance: QUETIAPINE FUMARATE

REACTIONS (5)
  - Mental status changes [None]
  - Hypoxia [None]
  - Failure to thrive [None]
  - Sedation complication [None]
  - Lethargy [None]

NARRATIVE: CASE EVENT DATE: 20170702
